FAERS Safety Report 7161321-5 (Version None)
Quarter: 2010Q4

REPORT INFORMATION
  Report Type: 
  Country: None (occurrence: None)
  Receive Date: 20101210
  Receipt Date: 20101210
  Transmission Date: 20110411
  Serious: Yes (Other)
  Sender: FDA-Public Use
  Company Number: None

PATIENT

DRUGS (1)
  1. DEXTROAMPHETAMINE [Suspect]
     Dosage: 10MG TABLET DAILY PO
     Route: 048
     Dates: start: 20101208, end: 20101208

REACTIONS (1)
  - PRODUCT PACKAGING QUANTITY ISSUE [None]
